FAERS Safety Report 23721563 (Version 1)
Quarter: 2024Q2

REPORT INFORMATION
  Report Type: Spontaneous
  Country: CA (occurrence: CA)
  Receive Date: 20240409
  Receipt Date: 20240409
  Transmission Date: 20240716
  Serious: Yes (Hospitalization, Disabling)
  Sender: FDA-Public Use
  Company Number: CA-TEVA-VS-3178044

PATIENT
  Age: 1 Day
  Sex: Male

DRUGS (1)
  1. VENLAFAXINE HYDROCHLORIDE [Suspect]
     Active Substance: VENLAFAXINE HYDROCHLORIDE
     Indication: Depression
     Route: 065

REACTIONS (7)
  - Encephalopathy [Recovered/Resolved]
  - Floppy infant [Recovered/Resolved]
  - Hypotonia [Recovered/Resolved]
  - Infantile apnoea [Recovered/Resolved]
  - Mechanical ventilation [Recovered/Resolved]
  - Poor feeding infant [Recovered/Resolved]
  - Somnolence [Recovered/Resolved]
